FAERS Safety Report 8041426-7 (Version None)
Quarter: 2012Q1

REPORT INFORMATION
  Report Type: 
  Country: None (occurrence: None)
  Receive Date: 20120112
  Receipt Date: 20120109
  Transmission Date: 20120608
  Serious: Yes (Hospitalization, Other)
  Sender: FDA-Public Use
  Company Number: CO-BRISTOL-MYERS SQUIBB COMPANY-16325706

PATIENT
  Age: 48 Year
  Sex: Male

DRUGS (1)
  1. IPILIMUMAB [Suspect]
     Indication: METASTATIC MALIGNANT MELANOMA
     Dosage: SECOND ON 22-DEC-11
     Dates: start: 20111201

REACTIONS (3)
  - INTESTINAL PERFORATION [None]
  - AMOEBIC COLITIS [None]
  - RENAL FAILURE ACUTE [None]
